FAERS Safety Report 20554517 (Version 1)
Quarter: 2022Q1

REPORT INFORMATION
  Report Type: Spontaneous
  Country: CA (occurrence: CA)
  Receive Date: 20220304
  Receipt Date: 20220304
  Transmission Date: 20220423
  Serious: Yes (Life-Threatening, Hospitalization, Other)
  Sender: FDA-Public Use
  Company Number: CA-BAUSCH-BL-2019-009925

PATIENT
  Age: 65 Year
  Sex: Female
  Weight: 69 kg

DRUGS (69)
  1. ALTACE [Suspect]
     Active Substance: RAMIPRIL
     Indication: Product used for unknown indication
     Route: 065
  2. METFORMIN HYDROCHLORIDE [Suspect]
     Active Substance: METFORMIN HYDROCHLORIDE
     Indication: Product used for unknown indication
     Route: 048
  3. ACETAMINOPHEN [Suspect]
     Active Substance: ACETAMINOPHEN
     Indication: Product used for unknown indication
     Route: 048
  4. AMLODIPINE BESYLATE [Suspect]
     Active Substance: AMLODIPINE BESYLATE
     Indication: Product used for unknown indication
     Route: 065
  5. AMLODIPINE BESYLATE [Suspect]
     Active Substance: AMLODIPINE BESYLATE
     Route: 048
  6. AMLODIPINE BESYLATE [Suspect]
     Active Substance: AMLODIPINE BESYLATE
     Route: 065
  7. ATACAND [Suspect]
     Active Substance: CANDESARTAN CILEXETIL
     Indication: Hypertension
     Route: 048
  8. GLICLAZIDE [Suspect]
     Active Substance: GLICLAZIDE
     Indication: Diabetes mellitus
     Route: 065
  9. GLICLAZIDE [Suspect]
     Active Substance: GLICLAZIDE
     Indication: Blood pressure abnormal
  10. DIPHENHYDRAMINE HYDROCHLORIDE [Suspect]
     Active Substance: DIPHENHYDRAMINE HYDROCHLORIDE
     Indication: Premedication
     Route: 048
  11. GRAVOL [Suspect]
     Active Substance: DIMENHYDRINATE
     Indication: Premedication
     Route: 065
  12. LISINOPRIL [Suspect]
     Active Substance: LISINOPRIL
     Indication: Hypertension
     Route: 048
  13. METHYLPREDNISOLONE SODIUM SUCCINATE [Suspect]
     Active Substance: METHYLPREDNISOLONE SODIUM SUCCINATE
     Indication: Premedication
     Route: 042
  14. MORPHINE SULFATE [Suspect]
     Active Substance: MORPHINE SULFATE
     Indication: Product used for unknown indication
     Dosage: LIQUID INTRAMUSCULAR
     Route: 030
  15. MORPHINE SULFATE [Suspect]
     Active Substance: MORPHINE SULFATE
     Route: 065
  16. NEXIUM [Suspect]
     Active Substance: ESOMEPRAZOLE MAGNESIUM
     Indication: Product used for unknown indication
     Route: 048
  17. NEXIUM [Suspect]
     Active Substance: ESOMEPRAZOLE MAGNESIUM
     Route: 042
  18. PREDNISONE [Suspect]
     Active Substance: PREDNISONE
     Indication: Product used for unknown indication
     Route: 065
  19. RITUXAN [Suspect]
     Active Substance: RITUXIMAB
     Indication: Sjogren^s syndrome
     Route: 042
  20. RITUXAN [Suspect]
     Active Substance: RITUXIMAB
     Indication: Rheumatoid arthritis
     Route: 065
  21. PROCHLORPERAZINE [Suspect]
     Active Substance: PROCHLORPERAZINE
     Indication: Vomiting
     Route: 065
  22. SYNTHROID [Suspect]
     Active Substance: LEVOTHYROXINE SODIUM
     Indication: Product used for unknown indication
     Route: 065
  23. ZOFRAN [Suspect]
     Active Substance: ONDANSETRON HYDROCHLORIDE
     Indication: Product used for unknown indication
     Route: 065
  24. ALISKIREN [Suspect]
     Active Substance: ALISKIREN
     Indication: Product used for unknown indication
     Route: 048
  25. ALISKIREN HEMIFUMARATE [Suspect]
     Active Substance: ALISKIREN HEMIFUMARATE
     Indication: Microalbuminuria
     Route: 048
  26. ALISKIREN HEMIFUMARATE [Suspect]
     Active Substance: ALISKIREN HEMIFUMARATE
     Indication: Hypertension
     Route: 065
  27. ALISKIREN HEMIFUMARATE [Suspect]
     Active Substance: ALISKIREN HEMIFUMARATE
     Indication: Off label use
     Route: 048
  28. BISOPROLOL [Suspect]
     Active Substance: BISOPROLOL
     Indication: Product used for unknown indication
     Route: 065
  29. CALCIUM CARBONATE [Suspect]
     Active Substance: CALCIUM CARBONATE
     Indication: Product used for unknown indication
     Route: 065
  30. COSENTYX [Suspect]
     Active Substance: SECUKINUMAB
     Indication: Psoriatic arthropathy
     Route: 058
  31. COSENTYX [Suspect]
     Active Substance: SECUKINUMAB
     Indication: Psoriasis
     Route: 058
  32. COSENTYX [Suspect]
     Active Substance: SECUKINUMAB
     Indication: Hypertension
     Route: 065
  33. COSENTYX [Suspect]
     Active Substance: SECUKINUMAB
     Route: 058
  34. ERGOCALCIFEROL [Suspect]
     Active Substance: ERGOCALCIFEROL
     Indication: Product used for unknown indication
     Route: 065
  35. IRBESARTAN [Suspect]
     Active Substance: IRBESARTAN
     Indication: Hypertension
     Route: 048
  36. IRBESARTAN [Suspect]
     Active Substance: IRBESARTAN
     Route: 048
  37. JANUVIA [Suspect]
     Active Substance: SITAGLIPTIN PHOSPHATE
     Indication: Product used for unknown indication
     Route: 048
  38. LIPITOR [Suspect]
     Active Substance: ATORVASTATIN CALCIUM
     Indication: Product used for unknown indication
     Route: 065
  39. METHOTREXATE [Suspect]
     Active Substance: METHOTREXATE
     Indication: Product used for unknown indication
     Route: 065
  40. METHOTREXATE [Suspect]
     Active Substance: METHOTREXATE
     Route: 064
  41. NEXIUM 24HR [Suspect]
     Active Substance: ESOMEPRAZOLE MAGNESIUM
     Indication: Product used for unknown indication
     Route: 048
  42. DOMPERIDONE [Concomitant]
     Active Substance: DOMPERIDONE
     Indication: Product used for unknown indication
  43. HYDROCHLOROTHIAZIDE [Concomitant]
     Active Substance: HYDROCHLOROTHIAZIDE
     Indication: Product used for unknown indication
  44. DEPO-MEDROL [Concomitant]
     Active Substance: METHYLPREDNISOLONE ACETATE
     Indication: Product used for unknown indication
     Dosage: SUSPENSION INTRAARTICULAR
     Route: 014
  45. LEVOTHYROXINE [Concomitant]
     Active Substance: LEVOTHYROXINE
     Indication: Product used for unknown indication
  46. EZETIMIBE [Concomitant]
     Active Substance: EZETIMIBE
     Indication: Product used for unknown indication
  47. HUMALOG [Concomitant]
     Active Substance: INSULIN LISPRO
     Indication: Product used for unknown indication
  48. JANUVIA [Concomitant]
     Active Substance: SITAGLIPTIN PHOSPHATE
     Indication: Product used for unknown indication
  49. LANTUS [Concomitant]
     Active Substance: INSULIN GLARGINE
     Indication: Product used for unknown indication
     Dosage: SOLUTION SUBCUTANEOUS
     Route: 058
  50. LEVEMIR [Concomitant]
     Active Substance: INSULIN DETEMIR
     Indication: Product used for unknown indication
     Dosage: SOLUTION SUBCUTANEOUS
     Route: 058
  51. LYRICA [Concomitant]
     Active Substance: PREGABALIN
     Indication: Product used for unknown indication
  52. PANTOPRAZOLE SODIUM [Concomitant]
     Active Substance: PANTOPRAZOLE SODIUM
     Indication: Product used for unknown indication
  53. ROSUVASTATIN [Concomitant]
     Active Substance: ROSUVASTATIN
     Indication: Product used for unknown indication
  54. TYLENOL [Concomitant]
     Active Substance: ACETAMINOPHEN
     Indication: Product used for unknown indication
     Route: 048
  55. ACITRETIN [Concomitant]
     Active Substance: ACITRETIN
     Indication: Product used for unknown indication
  56. AMEVIVE [Concomitant]
     Active Substance: ALEFACEPT
     Indication: Product used for unknown indication
     Dosage: DOSAGE FORM: POWDER FOR SOLUTION
     Route: 030
  57. AMEVIVE [Concomitant]
     Active Substance: ALEFACEPT
     Route: 030
  58. ASPIRIN [Concomitant]
     Active Substance: ASPIRIN
     Indication: Product used for unknown indication
  59. AVAPRO [Concomitant]
     Active Substance: IRBESARTAN
     Indication: Product used for unknown indication
  60. COAL TAR [Concomitant]
     Active Substance: COAL TAR
     Indication: Product used for unknown indication
  61. CYMBALTA [Concomitant]
     Active Substance: DULOXETINE HYDROCHLORIDE
     Indication: Product used for unknown indication
     Route: 065
  62. DOVONEX [Concomitant]
     Active Substance: CALCIPOTRIENE
     Indication: Product used for unknown indication
     Route: 065
  63. ESOMEPRAZOLE [Concomitant]
     Active Substance: ESOMEPRAZOLE
     Indication: Product used for unknown indication
     Route: 065
  64. PANTOPRAZOLE MAGNESIUM [Concomitant]
     Active Substance: PANTOPRAZOLE MAGNESIUM
     Indication: Product used for unknown indication
     Route: 065
  65. ROSUVASTATIN CALCIUM;TELMISARTAN [Concomitant]
     Indication: Product used for unknown indication
     Route: 065
  66. STELARA [Concomitant]
     Active Substance: USTEKINUMAB
     Indication: Product used for unknown indication
     Route: 058
  67. SYNTHROID [Concomitant]
     Active Substance: LEVOTHYROXINE SODIUM
     Indication: Product used for unknown indication
     Route: 065
  68. ZOLPIDEM [Concomitant]
     Active Substance: ZOLPIDEM TARTRATE
     Indication: Product used for unknown indication
     Route: 048
  69. ROSUVASTATIN CALCIUM [Concomitant]
     Active Substance: ROSUVASTATIN CALCIUM
     Indication: Product used for unknown indication

REACTIONS (53)
  - Arterial occlusive disease [Not Recovered/Not Resolved]
  - Blood pressure increased [Not Recovered/Not Resolved]
  - Gangrene [Not Recovered/Not Resolved]
  - Cataract [Not Recovered/Not Resolved]
  - Rheumatoid arthritis [Not Recovered/Not Resolved]
  - Gastric disorder [Not Recovered/Not Resolved]
  - Chest discomfort [Not Recovered/Not Resolved]
  - Adjustment disorder [Not Recovered/Not Resolved]
  - Affect lability [Not Recovered/Not Resolved]
  - Aphasia [Not Recovered/Not Resolved]
  - Carotid artery thrombosis [Not Recovered/Not Resolved]
  - Coordination abnormal [Not Recovered/Not Resolved]
  - Cystitis [Not Recovered/Not Resolved]
  - Dysarthria [Not Recovered/Not Resolved]
  - Eating disorder [Not Recovered/Not Resolved]
  - Fall [Not Recovered/Not Resolved]
  - Hemiparesis [Not Recovered/Not Resolved]
  - Hemiplegia [Not Recovered/Not Resolved]
  - Influenza [Not Recovered/Not Resolved]
  - Influenza like illness [Not Recovered/Not Resolved]
  - Motor dysfunction [Not Recovered/Not Resolved]
  - Muscle spasticity [Not Recovered/Not Resolved]
  - Muscular weakness [Not Recovered/Not Resolved]
  - Neurologic neglect syndrome [Not Recovered/Not Resolved]
  - Pain [Not Recovered/Not Resolved]
  - Personality disorder [Not Recovered/Not Resolved]
  - Pneumonia [Not Recovered/Not Resolved]
  - Psoriasis [Not Recovered/Not Resolved]
  - Respiratory tract congestion [Not Recovered/Not Resolved]
  - Rhinorrhoea [Not Recovered/Not Resolved]
  - Sensory loss [Not Recovered/Not Resolved]
  - Sinus congestion [Not Recovered/Not Resolved]
  - Sinus disorder [Not Recovered/Not Resolved]
  - Skin exfoliation [Not Recovered/Not Resolved]
  - Skin haemorrhage [Not Recovered/Not Resolved]
  - Sneezing [Not Recovered/Not Resolved]
  - Arthritis [Not Recovered/Not Resolved]
  - Dysphagia [Not Recovered/Not Resolved]
  - Malaise [Not Recovered/Not Resolved]
  - Nasopharyngitis [Not Recovered/Not Resolved]
  - Pyrexia [Not Recovered/Not Resolved]
  - Angina pectoris [Not Recovered/Not Resolved]
  - Asthenia [Not Recovered/Not Resolved]
  - Fatigue [Not Recovered/Not Resolved]
  - Headache [Not Recovered/Not Resolved]
  - Nausea [Not Recovered/Not Resolved]
  - Palpitations [Not Recovered/Not Resolved]
  - Sinusitis [Not Recovered/Not Resolved]
  - Anxiety [Not Recovered/Not Resolved]
  - Cerebrovascular accident [Not Recovered/Not Resolved]
  - Confusional state [Not Recovered/Not Resolved]
  - Cough [Not Recovered/Not Resolved]
  - Vomiting [Not Recovered/Not Resolved]
